FAERS Safety Report 7265696-8 (Version None)
Quarter: 2011Q1

REPORT INFORMATION
  Report Type: 
  Country: None (occurrence: None)
  Receive Date: 20110131
  Receipt Date: 20110125
  Transmission Date: 20110831
  Serious: Yes (Hospitalization)
  Sender: FDA-Public Use
  Company Number: FR-MERCK-1101FRA00133

PATIENT
  Age: 61 Year
  Sex: Male

DRUGS (9)
  1. CEFIXIME [Concomitant]
     Indication: ORCHITIS
     Route: 048
     Dates: start: 20101231, end: 20110117
  2. FLUINDIONE [Concomitant]
     Route: 048
     Dates: start: 20070101, end: 20101201
  3. ASPIRIN AND PRAVASTATIN SODIUM [Concomitant]
     Route: 048
     Dates: start: 20090101
  4. JANUMET [Suspect]
     Indication: TYPE 2 DIABETES MELLITUS
     Route: 048
     Dates: start: 20100601
  5. CEFTRIAXONE SODIUM [Concomitant]
     Indication: ORCHITIS
     Route: 065
     Dates: start: 20101227, end: 20101230
  6. FUROSEMIDE [Concomitant]
     Route: 065
  7. DIGOXIN [Concomitant]
     Route: 048
     Dates: start: 20070101
  8. CIPROFLOXACIN [Concomitant]
     Indication: ORCHITIS
     Route: 048
     Dates: start: 20101101, end: 20101201
  9. ALISKIREN FUMARATE [Concomitant]
     Route: 065
     Dates: start: 20100601

REACTIONS (3)
  - TOXIC SKIN ERUPTION [None]
  - PURPURA [None]
  - ORCHITIS [None]
